FAERS Safety Report 8737969 (Version 2)
Quarter: 2013Q4

REPORT INFORMATION
  Report Type: Report from Study
  Country: PL (occurrence: PL)
  Receive Date: 20120823
  Receipt Date: 20131031
  Transmission Date: 20140711
  Serious: Yes (Hospitalization)
  Sender: FDA-Public Use
  Company Number: PL-009507513-2010SP057152

PATIENT
  Age: 27 Year
  Sex: Female
  Weight: 58 kg

DRUGS (13)
  1. BOCEPREVIR [Suspect]
     Indication: CHRONIC HEPATITIS C
     Dosage: 800 MG, TID
     Route: 048
     Dates: start: 20100729
  2. BOCEPREVIR [Suspect]
     Dosage: 800 MG, TID
     Route: 048
     Dates: start: 20100729
  3. BOCEPREVIR [Suspect]
     Dosage: 800 MG, TID
     Route: 048
     Dates: start: 20100729
  4. BOCEPREVIR [Suspect]
     Dosage: 800 MG, TID
     Route: 048
     Dates: start: 20100729
  5. PEGINTERFERON ALFA-2B [Suspect]
     Indication: CHRONIC HEPATITIS C
     Dosage: 80 MICROGRAM, QW
     Route: 058
     Dates: start: 20100701
  6. RIBAVIRIN [Suspect]
     Indication: CHRONIC HEPATITIS C
     Dosage: 800 MG, QD
     Route: 048
     Dates: start: 20100701
  7. LOPINAVIR (+) RITONAVIR [Suspect]
     Indication: HIV INFECTION
     Dosage: 2 DF, BID
     Route: 048
     Dates: start: 20100518
  8. VIREAD [Suspect]
     Indication: HIV INFECTION
     Dosage: 1 DF, QD
     Route: 048
     Dates: start: 20100518
  9. EPIVIR [Suspect]
     Indication: HIV INFECTION
     Dosage: 1 DF, QD
     Route: 048
     Dates: start: 20100518
  10. BEBETINA [Concomitant]
     Indication: HEADACHE
     Dosage: 500 MG, ONCE
     Route: 065
     Dates: start: 20101008
  11. BEBETINA [Concomitant]
     Indication: HEADACHE
     Dosage: 500 MG, ONCE
     Route: 065
     Dates: start: 20101015
  12. BEBETINA [Concomitant]
     Indication: HEADACHE
     Dosage: 500 MG, ONCE
     Route: 065
     Dates: start: 20101021
  13. BEBETINA [Concomitant]
     Indication: HEADACHE
     Dosage: 500 MG, ONCE
     Route: 065
     Dates: start: 20101022

REACTIONS (1)
  - Lymphadenopathy [Recovered/Resolved]
